FAERS Safety Report 6559348-7 (Version None)
Quarter: 2010Q1

REPORT INFORMATION
  Report Type: 
  Country: None (occurrence: None)
  Receive Date: 20100129
  Receipt Date: 20090902
  Transmission Date: 20100710
  Serious: Yes (Other)
  Sender: FDA-Public Use
  Company Number: US-ABBOTT-09P-163-0595060-00

PATIENT
  Sex: Male
  Weight: 54.026 kg

DRUGS (12)
  1. HUMIRA [Suspect]
     Indication: PSORIASIS
     Dates: start: 20070101
  2. ATENOLOL [Concomitant]
     Indication: HYPERTENSION
  3. SIMVASTATIN [Concomitant]
     Indication: BLOOD CHOLESTEROL INCREASED
  4. NIFEDIPINE [Concomitant]
     Indication: HYPERTENSION
  5. FLUOCINOLONE ACETONIDE [Concomitant]
     Indication: PSORIASIS
  6. DOVONEX [Concomitant]
     Indication: PSORIASIS
  7. CLOBETASOL PROPIONATE [Concomitant]
     Indication: PSORIASIS
  8. ASPIRIN [Concomitant]
     Indication: CARDIOVASCULAR EVENT PROPHYLAXIS
  9. BENADRYL [Concomitant]
     Indication: INSOMNIA
  10. TYLENOL-500 [Concomitant]
     Indication: PAIN
  11. RANITIDINE [Concomitant]
     Indication: GASTROOESOPHAGEAL REFLUX DISEASE
  12. IBUPROFEN [Concomitant]
     Indication: PAIN

REACTIONS (3)
  - BLADDER TRANSITIONAL CELL CARCINOMA [None]
  - BLOOD URINE PRESENT [None]
  - PROSTATIC SPECIFIC ANTIGEN INCREASED [None]
